FAERS Safety Report 6295656-5 (Version None)
Quarter: 2009Q3

REPORT INFORMATION
  Report Type: 
  Country: None (occurrence: None)
  Receive Date: 20090803
  Receipt Date: 20090803
  Transmission Date: 20100115
  Serious: Yes (Life-Threatening, Hospitalization)
  Sender: FDA-Public Use
  Company Number: None

PATIENT
  Sex: Male
  Weight: 90 kg

DRUGS (2)
  1. BOVINE THROMBIN 20,000 UNITS JMI-KING [Suspect]
     Indication: OPERATIVE HAEMORRHAGE
     Dosage: 20,000 UNITS TOP
     Route: 061
     Dates: start: 20071207, end: 20071207
  2. BOVINE THROMBIN 20,000 UNITS JMI-KING [Suspect]
     Indication: OPERATIVE HAEMORRHAGE
     Dosage: 20,000 UNITS TOP
     Route: 061
     Dates: start: 20090311, end: 20090311

REACTIONS (3)
  - ANTI FACTOR V ANTIBODY POSITIVE [None]
  - COAGULOPATHY [None]
  - HAEMOTHORAX [None]
